FAERS Safety Report 15999803 (Version 2)
Quarter: 2019Q3

REPORT INFORMATION
  Report Type: Spontaneous
  Country: US (occurrence: US)
  Receive Date: 20190225
  Receipt Date: 20190710
  Transmission Date: 20191004
  Serious: Yes (Death, Hospitalization, Other)
  Sender: FDA-Public Use
  Company Number: US-ASTRAZENECA-2019SE28692

PATIENT
  Age: 29685 Day
  Sex: Female

DRUGS (24)
  1. METOPROLOL. [Concomitant]
     Active Substance: METOPROLOL
  2. DONEPEZIL. [Concomitant]
     Active Substance: DONEPEZIL
  3. NEXIUM [Suspect]
     Active Substance: ESOMEPRAZOLE MAGNESIUM
     Indication: GASTROOESOPHAGEAL REFLUX DISEASE
     Route: 048
     Dates: start: 2005, end: 2013
  4. NEXIUM [Suspect]
     Active Substance: ESOMEPRAZOLE MAGNESIUM
     Indication: GASTROOESOPHAGEAL REFLUX DISEASE
     Route: 048
     Dates: start: 20070420
  5. GLIMEPIRIDE. [Concomitant]
     Active Substance: GLIMEPIRIDE
  6. ALLOPURINOL. [Concomitant]
     Active Substance: ALLOPURINOL
  7. MAALOX ANTACID [Concomitant]
     Active Substance: ALUMINUM HYDROXIDE\DIMETHICONE\MAGNESIUM HYDROXIDE
  8. TUMS [Concomitant]
     Active Substance: CALCIUM CARBONATE
  9. WARFARIN [Concomitant]
     Active Substance: WARFARIN
  10. LEVOTHYROXINE. [Concomitant]
     Active Substance: LEVOTHYROXINE
  11. ALPRAZOLAM. [Concomitant]
     Active Substance: ALPRAZOLAM
  12. TRAMADOL. [Concomitant]
     Active Substance: TRAMADOL
  13. PREVACID [Suspect]
     Active Substance: LANSOPRAZOLE
     Route: 065
     Dates: start: 2005, end: 2013
  14. HYDROCODONE [Concomitant]
     Active Substance: HYDROCODONE
  15. GABAPENTIN. [Concomitant]
     Active Substance: GABAPENTIN
  16. FUROSEMIDE. [Concomitant]
     Active Substance: FUROSEMIDE
  17. SYNTHROID [Concomitant]
     Active Substance: LEVOTHYROXINE SODIUM
  18. PREVACID [Suspect]
     Active Substance: LANSOPRAZOLE
     Route: 065
     Dates: start: 2005
  19. CEFPROZIL. [Concomitant]
     Active Substance: CEFPROZIL
  20. MUPIROCIN. [Concomitant]
     Active Substance: MUPIROCIN
  21. CITALOPRAM [Concomitant]
     Active Substance: CITALOPRAM HYDROBROMIDE
  22. MORPHINE [Concomitant]
     Active Substance: MORPHINE
  23. MECLIZINE [Concomitant]
     Active Substance: MECLIZINE HYDROCHLORIDE
  24. VYTORIN [Concomitant]
     Active Substance: EZETIMIBE\SIMVASTATIN

REACTIONS (7)
  - Cerebrovascular accident [Fatal]
  - End stage renal disease [Unknown]
  - Anaemia [Fatal]
  - Renal failure [Unknown]
  - Sepsis [Fatal]
  - Acute kidney injury [Fatal]
  - Chronic kidney disease [Unknown]

NARRATIVE: CASE EVENT DATE: 20080303
